FAERS Safety Report 24791487 (Version 1)
Quarter: 2024Q4

REPORT INFORMATION
  Report Type: Report from Study
  Country: US (occurrence: US)
  Receive Date: 20241231
  Receipt Date: 20241231
  Transmission Date: 20250115
  Serious: Yes (Hospitalization, Other)
  Sender: ABBVIE
  Company Number: US-ABBVIE-6033617

PATIENT
  Sex: Male

DRUGS (1)
  1. CREON [Suspect]
     Active Substance: PANCRELIPASE AMYLASE\PANCRELIPASE LIPASE\PANCRELIPASE PROTEASE
     Indication: Product used for unknown indication
     Dosage: WITH EVERY MEAL AND EVERY SNACKS
     Route: 048
     Dates: start: 20231101

REACTIONS (4)
  - Malignant neoplasm progression [Not Recovered/Not Resolved]
  - Hospitalisation [Unknown]
  - Decubitus ulcer [Unknown]
  - Asthenia [Not Recovered/Not Resolved]
